FAERS Safety Report 15882751 (Version 1)
Quarter: 2019Q1

REPORT INFORMATION
  Report Type: Spontaneous
  Country: US (occurrence: US)
  Receive Date: 20190129
  Receipt Date: 20190129
  Transmission Date: 20190417
  Serious: No
  Sender: FDA-Public Use
  Company Number: US-ASTRAZENECA-2019SE09194

PATIENT
  Sex: Female

DRUGS (16)
  1. ALPRAZOLAM. [Concomitant]
     Active Substance: ALPRAZOLAM
  2. MULTIVITAMIN [Concomitant]
     Active Substance: VITAMINS
  3. TIZANIDINE. [Concomitant]
     Active Substance: TIZANIDINE
  4. OXYCODONE [Concomitant]
     Active Substance: OXYCODONE
  5. BUPROPION. [Concomitant]
     Active Substance: BUPROPION
  6. LEVOFLOXACIN. [Concomitant]
     Active Substance: LEVOFLOXACIN
  7. MORPHINE [Concomitant]
     Active Substance: MORPHINE
  8. MOVANTIK [Suspect]
     Active Substance: NALOXEGOL OXALATE
     Route: 048
  9. VENLAFAXINE [Concomitant]
     Active Substance: VENLAFAXINE HYDROCHLORIDE
  10. PHENAZOPYRIDINE. [Concomitant]
     Active Substance: PHENAZOPYRIDINE
  11. ESTRADIOL. [Concomitant]
     Active Substance: ESTRADIOL
  12. DEXTROAMPHETAMINE-AMPH [Concomitant]
  13. BOSUTINIB [Suspect]
     Active Substance: BOSUTINIB
     Route: 048
     Dates: start: 20170516
  14. HYDROCHLOROTHIAZIDE. [Suspect]
     Active Substance: HYDROCHLOROTHIAZIDE
     Route: 065
  15. OMEPRAZOLE. [Suspect]
     Active Substance: OMEPRAZOLE
     Route: 048
  16. TRAZODONE [Concomitant]
     Active Substance: TRAZODONE HYDROCHLORIDE

REACTIONS (4)
  - Abdominal distension [Unknown]
  - Flatulence [Unknown]
  - Constipation [Unknown]
  - Nausea [Unknown]
